FAERS Safety Report 21971565 (Version 2)
Quarter: 2023Q2

REPORT INFORMATION
  Report Type: Report from Study
  Country: US (occurrence: US)
  Receive Date: 20230209
  Receipt Date: 20230601
  Transmission Date: 20230721
  Serious: Yes (Hospitalization)
  Sender: FDA-Public Use
  Company Number: US-ARGENX-2022-ARGX-US001061

PATIENT
  Age: 37 Year
  Sex: Female
  Weight: 58.503 kg

DRUGS (1)
  1. VYVGART [Suspect]
     Active Substance: EFGARTIGIMOD ALFA-FCAB
     Indication: Myasthenia gravis
     Dosage: UNK
     Route: 042

REACTIONS (7)
  - Myasthenia gravis crisis [Unknown]
  - Respiratory symptom [Unknown]
  - Headache [Unknown]
  - SARS-CoV-2 test positive [Unknown]
  - COVID-19 [Recovered/Resolved]
  - Disease recurrence [Unknown]
  - Immunoglobulins abnormal [Unknown]

NARRATIVE: CASE EVENT DATE: 20220621
